FAERS Safety Report 5789444-3 (Version None)
Quarter: 2008Q2

REPORT INFORMATION
  Report Type: 
  Country: None (occurrence: None)
  Receive Date: 20080626
  Receipt Date: 20071211
  Transmission Date: 20081010
  Serious: Yes (Hospitalization)
  Sender: FDA-Public Use
  Company Number: FR-AVENTIS-200713984FR

PATIENT
  Age: 74 Year
  Sex: Male

DRUGS (6)
  1. CLAFORAN [Suspect]
     Indication: SEPTIC SHOCK
     Route: 042
     Dates: start: 20070123, end: 20070213
  2. CLAFORAN [Suspect]
     Indication: MENINGITIS
     Route: 042
     Dates: start: 20070123, end: 20070213
  3. RIFADIN [Suspect]
     Indication: MENINGITIS
     Route: 042
     Dates: start: 20070124, end: 20070213
  4. VANCOMYCIN HCL [Suspect]
     Indication: SEPTIC SHOCK
     Route: 042
     Dates: start: 20070123, end: 20070213
  5. VANCOMYCIN HCL [Suspect]
     Indication: MENINGITIS
     Route: 042
     Dates: start: 20070123, end: 20070213
  6. AUGMENTIN '125' [Concomitant]
     Indication: SEPTIC SHOCK
     Dates: start: 20070123, end: 20070124

REACTIONS (4)
  - AGRANULOCYTOSIS [None]
  - ANAEMIA [None]
  - PETECHIAE [None]
  - RASH GENERALISED [None]
